FAERS Safety Report 9440236 (Version 1)
Quarter: 2013Q3

REPORT INFORMATION
  Report Type: Report from Study
  Country: TR (occurrence: TR)
  Receive Date: 20130805
  Receipt Date: 20130805
  Transmission Date: 20140515
  Serious: Yes (Hospitalization)
  Sender: FDA-Public Use
  Company Number: PHHY2013TR082984

PATIENT
  Age: 49 Year
  Sex: Male
  Weight: 65 kg

DRUGS (1)
  1. SANDOSTATIN LAR [Suspect]
     Indication: ACROMEGALY
     Dosage: 10 MG, ONCE EVERY 28 DAYS
     Route: 030
     Dates: start: 20020101

REACTIONS (1)
  - Inguinal hernia [Recovering/Resolving]
